FAERS Safety Report 5611491-2 (Version None)
Quarter: 2008Q1

REPORT INFORMATION
  Report Type: 
  Country: None (occurrence: None)
  Receive Date: 20080201
  Receipt Date: 20080122
  Transmission Date: 20080703
  Serious: Yes (Other)
  Sender: FDA-Public Use
  Company Number: UY-PFIZER INC-2008006343

PATIENT
  Sex: Female

DRUGS (1)
  1. SUTENT [Suspect]
     Indication: RENAL CANCER METASTATIC
     Route: 048

REACTIONS (5)
  - GINGIVITIS [None]
  - HYPOTONIA [None]
  - MALAISE [None]
  - MOBILITY DECREASED [None]
  - ORAL DISORDER [None]
